FAERS Safety Report 4659695-X (Version None)
Quarter: 2005Q2

REPORT INFORMATION
  Report Type: 
  Country: None (occurrence: None)
  Receive Date: 20050420
  Receipt Date: 20050318
  Transmission Date: 20051028
  Serious: No
  Sender: FDA-Public Use
  Company Number: PHEH2005US03338

PATIENT
  Age: 80 Year
  Sex: Female

DRUGS (4)
  1. ENABLEX [Suspect]
     Indication: MICTURITION URGENCY
     Dosage: 7.5 MG QD
     Dates: start: 20050215
  2. LIPITOR [Concomitant]
  3. NEXIUM [Concomitant]
  4. ALLEGRA [Concomitant]

REACTIONS (2)
  - CONSTIPATION [None]
  - ERYTHEMA [None]
